FAERS Safety Report 5067048-8 (Version None)
Quarter: 2006Q3

REPORT INFORMATION
  Report Type: 
  Country: None (occurrence: None)
  Receive Date: 20060727
  Receipt Date: 20060718
  Transmission Date: 20061208
  Serious: Yes (Life-Threatening)
  Sender: FDA-Public Use
  Company Number: APP200600203

PATIENT
  Age: 74 Year
  Sex: Female

DRUGS (2)
  1. PROTAMINE SULFATE INJECTION, USP (PROTAMINE SULFATE INJECTION, USP) [Suspect]
     Indication: HEPARIN NEUTRALISATION THERAPY
     Dosage: (100 MG, AS REQUIRED), INTRAVENOUS
     Route: 042
     Dates: start: 20040804, end: 20040804
  2. TRASYLOL [Suspect]
     Indication: DRUG USE FOR UNKNOWN INDICATION
     Dates: start: 20040804, end: 20040804

REACTIONS (3)
  - CARDIAC FAILURE [None]
  - HYPOTENSION [None]
  - ORGAN FAILURE [None]
